FAERS Safety Report 6965587-3 (Version None)
Quarter: 2010Q3

REPORT INFORMATION
  Report Type: 
  Country: None (occurrence: None)
  Receive Date: 20100903
  Receipt Date: 20100830
  Transmission Date: 20110219
  Serious: Yes (Life-Threatening)
  Sender: FDA-Public Use
  Company Number: JP-ASTRAZENECA-2010SE39128

PATIENT
  Age: 67 Year
  Sex: Female

DRUGS (2)
  1. FOSCAVIR [Suspect]
     Dosage: DOSE UNKNOWN
     Route: 041
     Dates: start: 20100810
  2. THYMOGLOBULIN [Concomitant]
     Dosage: DOSE UNKNOWN
     Route: 041

REACTIONS (4)
  - C-REACTIVE PROTEIN INCREASED [None]
  - DECREASED APPETITE [None]
  - HYPOKALAEMIA [None]
  - NAUSEA [None]
